FAERS Safety Report 4359443-7 (Version None)
Quarter: 2004Q2

REPORT INFORMATION
  Report Type: 
  Country: None (occurrence: None)
  Receive Date: 20040511
  Receipt Date: 20040413
  Transmission Date: 20050107
  Serious: Yes (Death)
  Sender: FDA-Public Use
  Company Number: A-CH2004-05539

PATIENT
  Age: 67 Year
  Sex: Female
  Weight: 55 kg

DRUGS (4)
  1. TRACLEER [Suspect]
     Indication: PULMONARY HYPERTENSION
     Dosage: 62.5 MG, BID, ORAL
     Route: 048
     Dates: start: 20040211, end: 20040222
  2. CALCIUM CHANNEL BLOCKERS [Concomitant]
  3. ENOXAPARIN SODIUM [Concomitant]
  4. OXYGEN (OXYGEN) [Concomitant]

REACTIONS (2)
  - RESPIRATORY FAILURE [None]
  - RIGHT VENTRICULAR FAILURE [None]
